FAERS Safety Report 18524446 (Version 2)
Quarter: 2020Q4

REPORT INFORMATION
  Report Type: Report from Study
  Country: MX (occurrence: MX)
  Receive Date: 20201119
  Receipt Date: 20201130
  Transmission Date: 20210114
  Serious: Yes (Other)
  Sender: FDA-Public Use
  Company Number: NVSC2020MX304092

PATIENT
  Sex: Female
  Weight: 48 kg

DRUGS (5)
  1. SANDIMMUN NEORAL [Suspect]
     Active Substance: CYCLOSPORINE
     Indication: APLASIA PURE RED CELL
     Dosage: 5 MG, Q12H
     Route: 048
  2. SANDIMMUN NEORAL [Suspect]
     Active Substance: CYCLOSPORINE
     Dosage: UNK (0.5 ML TO 1.5 ML AS NEEDED)
     Route: 048
     Dates: end: 2019
  3. EXJADE [Suspect]
     Active Substance: DEFERASIROX
     Indication: SERUM FERRITIN
     Dosage: 1 DF, BID
     Route: 048
     Dates: start: 2018
  4. REVOLADE [Suspect]
     Active Substance: ELTROMBOPAG
     Indication: PLATELET COUNT DECREASED
     Dosage: 1 DF, QD
     Route: 048
     Dates: start: 2018
  5. SANDIMMUN NEORAL [Suspect]
     Active Substance: CYCLOSPORINE
     Indication: MYELODYSPLASTIC SYNDROME
     Dosage: 0.5 DF, UNKNOWN (100 MG/ML)
     Route: 048
     Dates: start: 2016

REACTIONS (4)
  - Product use in unapproved indication [Unknown]
  - Myelodysplastic syndrome [Recovered/Resolved]
  - Graft versus host disease [Not Recovered/Not Resolved]
  - Product prescribing error [Unknown]

NARRATIVE: CASE EVENT DATE: 2018
